FAERS Safety Report 12077754 (Version 1)
Quarter: 2016Q1

REPORT INFORMATION
  Report Type: Report from Study
  Country: CO (occurrence: CO)
  Receive Date: 20160215
  Receipt Date: 20160215
  Transmission Date: 20160526
  Serious: Yes (Hospitalization)
  Sender: FDA-Public Use
  Company Number: PHHY2015CO166790

PATIENT
  Sex: Male
  Weight: 22 kg

DRUGS (1)
  1. EXJADE [Suspect]
     Active Substance: DEFERASIROX
     Indication: SICKLE CELL ANAEMIA
     Dosage: 25 MG/KG, QD (500 MG ONCE DAILY)
     Route: 048
     Dates: start: 20111229

REACTIONS (5)
  - Oxygen saturation decreased [Unknown]
  - Abdominal pain [Unknown]
  - Haemoglobin decreased [Unknown]
  - Blood iron increased [Unknown]
  - Incorrect dose administered [Unknown]
